FAERS Safety Report 6025023-0 (Version None)
Quarter: 2008Q4

REPORT INFORMATION
  Report Type: 
  Country: None (occurrence: None)
  Receive Date: 20081231
  Receipt Date: 20081222
  Transmission Date: 20090506
  Serious: Yes (Other)
  Sender: FDA-Public Use
  Company Number: AR-JNJFOC-20081007469

PATIENT
  Sex: Male
  Weight: 70 kg

DRUGS (3)
  1. IBUPROFEN TABLETS [Suspect]
     Indication: BACK PAIN
     Route: 048
  2. FLUTAMIDE [Concomitant]
     Route: 048
  3. OPTAMOX [Concomitant]
     Route: 048

REACTIONS (3)
  - EYE PAIN [None]
  - RETINAL DISORDER [None]
  - VISION BLURRED [None]
